FAERS Safety Report 5025107-X (Version None)
Quarter: 2006Q2

REPORT INFORMATION
  Report Type: 
  Country: None (occurrence: None)
  Receive Date: 20060426
  Receipt Date: 20060124
  Transmission Date: 20061013
  Serious: Yes (Other)
  Sender: FDA-Public Use
  Company Number: 2006012674

PATIENT
  Age: 32 Year
  Sex: Male

DRUGS (3)
  1. LYRICA [Suspect]
     Dates: start: 20050101
  2. GABAPENTIN [Concomitant]
  3. AMITRIPTYLINE HCL [Concomitant]

REACTIONS (1)
  - FATIGUE [None]
